FAERS Safety Report 17912169 (Version 1)
Quarter: 2020Q2

REPORT INFORMATION
  Report Type: Spontaneous
  Country: JP (occurrence: JP)
  Receive Date: 20200618
  Receipt Date: 20200618
  Transmission Date: 20200714
  Serious: Yes (Hospitalization, Other)
  Sender: FDA-Public Use
  Company Number: JP-ACCORD-185560

PATIENT
  Age: 59 Year
  Sex: Female

DRUGS (1)
  1. ROSUVASTATIN. [Suspect]
     Active Substance: ROSUVASTATIN
     Indication: HYPERLIPIDAEMIA

REACTIONS (4)
  - Hypoxia [Recovered/Resolved]
  - Acute respiratory failure [Recovered/Resolved]
  - Hypercapnia [Recovered/Resolved]
  - Myopathy [Recovered/Resolved]
